FAERS Safety Report 14765288 (Version 1)
Quarter: 2018Q2

REPORT INFORMATION
  Report Type: Spontaneous
  Country: IT (occurrence: IT)
  Receive Date: 20180416
  Receipt Date: 20180416
  Transmission Date: 20180711
  Serious: Yes (Hospitalization)
  Sender: FDA-Public Use
  Company Number: IT-TEVA-2018-IT-880227

PATIENT
  Age: 52 Year
  Sex: Female

DRUGS (13)
  1. MIRTAZAPINE. [Suspect]
     Active Substance: MIRTAZAPINE
     Route: 065
  2. PANTOPRAZOLE [Concomitant]
     Active Substance: PANTOPRAZOLE
  3. PREZISTA [Concomitant]
     Active Substance: DARUNAVIR ETHANOLATE
  4. NORVIR [Concomitant]
     Active Substance: RITONAVIR
  5. OLMESARTAN MEDOXOMIL. [Concomitant]
     Active Substance: OLMESARTAN MEDOXOMIL
  6. SELEPARINA [Concomitant]
     Active Substance: NADROPARIN CALCIUM
  7. CREON [Concomitant]
     Active Substance: PANCRELIPASE AMYLASE\PANCRELIPASE LIPASE\PANCRELIPASE PROTEASE
  8. KIVEXA 600 MG/300 MG FILM-COATED TABLETS [Concomitant]
  9. ETILTOX [Concomitant]
     Active Substance: DISULFIRAM
  10. TAVOR (LORAZEPAM) [Concomitant]
     Active Substance: LORAZEPAM
  11. METHADONE HYDROCHLORIDE. [Concomitant]
     Active Substance: METHADONE HYDROCHLORIDE
  12. LEVETIRACETAM. [Concomitant]
     Active Substance: LEVETIRACETAM
  13. OLANZAPINE. [Concomitant]
     Active Substance: OLANZAPINE

REACTIONS (5)
  - Hyperhidrosis [Unknown]
  - Disorientation [Unknown]
  - Agitation [Unknown]
  - Coma hepatic [Unknown]
  - Cyanosis [Unknown]

NARRATIVE: CASE EVENT DATE: 20171213
